FAERS Safety Report 15557876 (Version 1)
Quarter: 2018Q4

REPORT INFORMATION
  Report Type: Spontaneous
  Country: US (occurrence: US)
  Receive Date: 20181027
  Receipt Date: 20181027
  Transmission Date: 20190205
  Serious: Yes (Other)
  Sender: FDA-Public Use
  Company Number: US-009507513-1810USA007446

PATIENT
  Age: 71 Year
  Sex: Female

DRUGS (3)
  1. ZETIA [Suspect]
     Active Substance: EZETIMIBE
     Dosage: UNK
  2. CEFZIL [Suspect]
     Active Substance: CEFPROZIL
     Dosage: UNK
  3. DIOVAN [Suspect]
     Active Substance: VALSARTAN
     Dosage: UNK

REACTIONS (1)
  - Aplastic anaemia [Recovered/Resolved]
